FAERS Safety Report 7405668-3 (Version None)
Quarter: 2011Q2

REPORT INFORMATION
  Report Type: 
  Country: None (occurrence: None)
  Receive Date: 20110406
  Receipt Date: 20110406
  Transmission Date: 20111010
  Serious: Yes (Hospitalization, Other)
  Sender: FDA-Public Use
  Company Number: None

PATIENT
  Age: 25 Year
  Sex: Female
  Weight: 67.3 kg

DRUGS (1)
  1. YAZ [Suspect]
     Indication: PREMENSTRUAL SYNDROME
     Dosage: DAILY MOUTH  2 WEEKS IN FEBRUARY
     Route: 048

REACTIONS (5)
  - DEPRESSION [None]
  - PANIC ATTACK [None]
  - BIPOLAR DISORDER [None]
  - SUICIDAL IDEATION [None]
  - FEELING ABNORMAL [None]
